FAERS Safety Report 6904566-9 (Version None)
Quarter: 2010Q3

REPORT INFORMATION
  Report Type: 
  Country: None (occurrence: None)
  Receive Date: 20100804
  Receipt Date: 20090616
  Transmission Date: 20110219
  Serious: No
  Sender: FDA-Public Use
  Company Number: US-PFIZER INC-2009196344

PATIENT
  Sex: Female
  Weight: 58.503 kg

DRUGS (4)
  1. LYRICA [Suspect]
     Indication: COMPLEX REGIONAL PAIN SYNDROME
     Dosage: 50 MG, 2X/DAY
     Dates: end: 20090401
  2. LYRICA [Suspect]
     Dosage: 75 MG, 3X/DAY
     Dates: end: 20090401
  3. TOPAMAX [Concomitant]
  4. OXYCONTIN [Concomitant]

REACTIONS (1)
  - TINNITUS [None]
